FAERS Safety Report 14574238 (Version 2)
Quarter: 2018Q2

REPORT INFORMATION
  Report Type: Report from Study
  Country: US (occurrence: US)
  Receive Date: 20180226
  Receipt Date: 20180412
  Transmission Date: 20180711
  Serious: Yes (Death, Hospitalization)
  Sender: FDA-Public Use
  Company Number: US-ACTELION-A-NJ2017-159987

PATIENT
  Age: 87 Year
  Sex: Female

DRUGS (3)
  1. OPSUMIT [Suspect]
     Active Substance: MACITENTAN
     Indication: PULMONARY ARTERIAL HYPERTENSION
     Dosage: 10 MG, QD
     Route: 048
     Dates: start: 20150828
  2. OXYGEN. [Concomitant]
     Active Substance: OXYGEN
  3. VENTAVIS [Suspect]
     Active Substance: ILOPROST
     Indication: PULMONARY ARTERIAL HYPERTENSION
     Dosage: 5 MCG, TID
     Route: 055
     Dates: start: 20170602

REACTIONS (6)
  - Oxygen consumption increased [Unknown]
  - Malaise [Unknown]
  - Hypertension [Unknown]
  - Death [Fatal]
  - Dyspnoea [Unknown]
  - Drug dose omission [Unknown]
